FAERS Safety Report 7725043-1 (Version None)
Quarter: 2011Q3

REPORT INFORMATION
  Report Type: 
  Country: None (occurrence: None)
  Receive Date: 20110901
  Receipt Date: 20110819
  Transmission Date: 20111222
  Serious: Yes (Other)
  Sender: FDA-Public Use
  Company Number: US-BAYER-200829300NA

PATIENT
  Age: 45 Year
  Sex: Male
  Weight: 88.345 kg

DRUGS (30)
  1. EPOGEN [Concomitant]
     Dates: start: 19900101, end: 19990101
  2. IRON SUPPLEMENT [Concomitant]
  3. HEART MEDICATION (NOS) [Concomitant]
  4. HYDROCODONE [Concomitant]
  5. IMMUNOSUPPRESSIVE AGENTS [Concomitant]
  6. NIFEDIPINE [Concomitant]
  7. HYDRALAZINE HCL [Concomitant]
  8. MAGNEVIST [Suspect]
     Indication: NUCLEAR MAGNETIC RESONANCE IMAGING
  9. OPTIMARK [Suspect]
     Indication: PRODUCT USED FOR UNKNOWN INDICATION
  10. MULTIHANCE [Suspect]
     Indication: PRODUCT USED FOR UNKNOWN INDICATION
  11. DIGOXIN [Concomitant]
  12. PLAVIX [Concomitant]
  13. NEORAL [Concomitant]
  14. RESTORIL [Concomitant]
  15. PROCARDIA [Concomitant]
  16. COUMADIN [Concomitant]
  17. LASIX [Concomitant]
  18. COUMADIN [Concomitant]
  19. EFFEXOR [Concomitant]
  20. PROHANCE [Suspect]
     Indication: PRODUCT USED FOR UNKNOWN INDICATION
  21. MULTI-VITAMIN [Concomitant]
  22. LIPITOR [Concomitant]
  23. PREDNISONE [Concomitant]
  24. MAGNEVIST [Suspect]
     Indication: ANGIOGRAM
     Dates: start: 20070205, end: 20070205
  25. OMNISCAN [Suspect]
     Indication: PRODUCT USED FOR UNKNOWN INDICATION
  26. PREDNISONE [Concomitant]
  27. AMIODARONE HCL [Concomitant]
  28. LIPITOR [Concomitant]
  29. GADOLINIUM IN UNSPECIFIED DRUG [Suspect]
     Indication: NUCLEAR MAGNETIC RESONANCE IMAGING
     Dosage: UNK UNK, ONCE
     Dates: start: 20021120, end: 20021120
  30. COREG [Concomitant]

REACTIONS (13)
  - ANXIETY [None]
  - EMOTIONAL DISTRESS [None]
  - MAJOR DEPRESSION [None]
  - PAIN [None]
  - RASH [None]
  - NEPHROGENIC SYSTEMIC FIBROSIS [None]
  - PAIN IN EXTREMITY [None]
  - BACK PAIN [None]
  - DISCOMFORT [None]
  - INJURY [None]
  - MOBILITY DECREASED [None]
  - GENERAL PHYSICAL HEALTH DETERIORATION [None]
  - OEDEMA PERIPHERAL [None]
